FAERS Safety Report 23573395 (Version 1)
Quarter: 2024Q1

REPORT INFORMATION
  Report Type: Spontaneous
  Country: US (occurrence: None)
  Receive Date: 20240228
  Receipt Date: 20240228
  Transmission Date: 20240410
  Serious: No
  Sender: FDA-Public Use
  Company Number: 2024A047716

PATIENT

DRUGS (2)
  1. SEROQUEL [Suspect]
     Active Substance: QUETIAPINE FUMARATE
     Route: 048
  2. QUETIAPINE [Suspect]
     Active Substance: QUETIAPINE
     Route: 048

REACTIONS (12)
  - Depression [Unknown]
  - Sleep deficit [Unknown]
  - Dizziness [Unknown]
  - Dizziness [Unknown]
  - Nausea [Unknown]
  - Mental disorder [Unknown]
  - Fatigue [Unknown]
  - Vertigo [Unknown]
  - Product dose omission issue [Unknown]
  - Product substitution issue [Unknown]
  - Dry throat [Unknown]
  - Lip swelling [Unknown]
